FAERS Safety Report 13073254 (Version 4)
Quarter: 2017Q2

REPORT INFORMATION
  Report Type: Spontaneous
  Country: US (occurrence: US)
  Receive Date: 20161229
  Receipt Date: 20170427
  Transmission Date: 20170830
  Serious: Yes (Other)
  Sender: FDA-Public Use
  Company Number: US-SAOL THERAPEUTICS-2016SAO01282

PATIENT
  Sex: Male
  Weight: 72.56 kg

DRUGS (3)
  1. COMPOUNDED BACLOFEN [Suspect]
     Active Substance: BACLOFEN
     Indication: MUSCLE SPASTICITY
     Dosage: 93 ?G, \DAY
     Route: 037
  2. COMPOUNDED BACLOFEN [Suspect]
     Active Substance: BACLOFEN
     Indication: SPINAL CORD INJURY
  3. BUPIVACAINE. [Suspect]
     Active Substance: BUPIVACAINE
     Dosage: 1.8 MG, \DAY
     Route: 037

REACTIONS (4)
  - Device failure [Recovered/Resolved]
  - Therapy non-responder [Unknown]
  - Wound infection [Unknown]
  - Device alarm issue [Recovered/Resolved]

NARRATIVE: CASE EVENT DATE: 2016
